FAERS Safety Report 6964763-3 (Version None)
Quarter: 2010Q3

REPORT INFORMATION
  Report Type: 
  Country: None (occurrence: None)
  Receive Date: 20100903
  Receipt Date: 20100824
  Transmission Date: 20110219
  Serious: Yes (Other)
  Sender: FDA-Public Use
  Company Number: US-PFIZER INC-2010107341

PATIENT
  Sex: Female
  Weight: 63.5 kg

DRUGS (2)
  1. RELPAX [Suspect]
     Indication: MIGRAINE
     Dosage: 40 MG, AS NEEDED
     Route: 048
     Dates: start: 20090801
  2. LEXAPRO [Concomitant]
     Dosage: UNK

REACTIONS (4)
  - ANXIETY [None]
  - LYMPHADENOPATHY [None]
  - PHARYNGITIS [None]
  - THROAT TIGHTNESS [None]
